FAERS Safety Report 26188518 (Version 1)
Quarter: 2025Q4

REPORT INFORMATION
  Report Type: Spontaneous
  Country: EG (occurrence: EG)
  Receive Date: 20251222
  Receipt Date: 20251222
  Transmission Date: 20260119
  Serious: Yes (Disabling)
  Sender: NOVO NORDISK
  Company Number: EG-NOVOPROD-1585357

PATIENT
  Sex: Female

DRUGS (1)
  1. TRESIBA [Suspect]
     Active Substance: INSULIN DEGLUDEC
     Indication: Diabetes mellitus
     Dosage: UNKNOWN

REACTIONS (2)
  - Diabetic complication [Unknown]
  - Retinal disorder [Unknown]
